FAERS Safety Report 10661789 (Version 1)
Quarter: 2014Q4

REPORT INFORMATION
  Report Type: Spontaneous
  Country: GB (occurrence: None)
  Receive Date: 20141216
  Receipt Date: 20141216
  Transmission Date: 20150529
  Serious: Yes (Other)
  Sender: FDA-Public Use
  Company Number: ABR_01886_2014

PATIENT
  Age: 27 Year
  Sex: Male

DRUGS (1)
  1. AMPHETAMINE(AMPHETAMINE) [Suspect]
     Active Substance: AMPHETAMINE
     Indication: PRODUCT USED FOR UNKNOWN INDICATION
     Dosage: DF

REACTIONS (4)
  - Stress cardiomyopathy [None]
  - Cardiogenic shock [None]
  - Pneumonia [None]
  - Pulmonary oedema [None]
